FAERS Safety Report 5403953-8 (Version None)
Quarter: 2007Q3

REPORT INFORMATION
  Report Type: 
  Country: None (occurrence: None)
  Receive Date: 20070802
  Receipt Date: 20070726
  Transmission Date: 20080115
  Serious: Yes (Other)
  Sender: FDA-Public Use
  Company Number: A0648607A

PATIENT
  Age: 21 Year
  Sex: Female
  Weight: 70 kg

DRUGS (3)
  1. PAXIL [Suspect]
     Indication: ANXIETY
     Route: 048
  2. ALPRAZOLAM [Concomitant]
  3. LORAZEPAM [Concomitant]

REACTIONS (24)
  - ABASIA [None]
  - ALCOHOL POISONING [None]
  - BLINDNESS [None]
  - BLOOD GLUCOSE INCREASED [None]
  - CONTUSION [None]
  - CONVULSION [None]
  - DEAFNESS [None]
  - DYSGEUSIA [None]
  - FACE INJURY [None]
  - FALL [None]
  - FEELING DRUNK [None]
  - HYPERHIDROSIS [None]
  - HYPOGLYCAEMIA [None]
  - ILL-DEFINED DISORDER [None]
  - LACERATION [None]
  - LOSS OF CONSCIOUSNESS [None]
  - MALAISE [None]
  - MENTAL IMPAIRMENT [None]
  - MOVEMENT DISORDER [None]
  - MUSCULOSKELETAL STIFFNESS [None]
  - MYDRIASIS [None]
  - SYNCOPE VASOVAGAL [None]
  - TOOTH FRACTURE [None]
  - URINARY INCONTINENCE [None]
